FAERS Safety Report 9802992 (Version 1)
Quarter: 2014Q1

REPORT INFORMATION
  Report Type: Spontaneous
  Country: US (occurrence: None)
  Receive Date: 20140102
  Receipt Date: 20140102
  Transmission Date: 20141002
  Serious: Yes (Death)
  Sender: FDA-Public Use
  Company Number: SYM-2013-14452

PATIENT
  Age: 72 Year
  Sex: Female

DRUGS (20)
  1. XENAZINE (TETRABENAZINE) (TABLET) (TETRABENAZINE) [Suspect]
     Indication: HUNTINGTON^S DISEASE
     Dosage: 25MG, 2 IN 1 D, ORAL
     Route: 048
  2. TYLENOL (PARACETAMOL) (PARACETAMOL) [Concomitant]
  3. HALDOL (HALOPERIDOL) (HALOPERIDOL) [Concomitant]
  4. HYDROCODONE (HYDROCODONE) [Concomitant]
  5. LEVOTHYROXINE (LEVOTHYROXINE) (LEVOTHYROXINE) [Concomitant]
  6. ATIVAN (LORAZEPAM) (LORAZEPAM) [Concomitant]
  7. METOPROLOL (METOPROLOL) (METOPROLOL) [Concomitant]
  8. OMEPRAZOLE (OMEPRAZOLE) (OMEPRAZOLE) [Concomitant]
  9. RESTORIL (TEMAZEPAM) (TEMAZEPAM) [Concomitant]
  10. CALCIUM (CALCIUM) (CALCIUM) [Concomitant]
  11. CLONAZEPAM (CLONAZEPAM) (CLONAZEPAM) [Concomitant]
  12. CLONIDINE (CLONIDINE) (CLONIDINE) [Concomitant]
  13. FLORISTOR (OTHER THERAPEUTIC PRODUCTS) (NULL) [Concomitant]
  14. FUROSEMIDE [Concomitant]
  15. HYDRALAZINE (HYDRALAZINE) (HYDRALAZINE) [Concomitant]
  16. LOMOTIL (LOMOTIL) [Concomitant]
  17. SENOKOT (SENNA ALEXANDRINA) (SENNA ALEXANDRINA) [Concomitant]
  18. DULCOLAX (BISACODYL) (BISACODYL) [Concomitant]
  19. ZOFRAN (ONDANSETRON) (ONDANSETRON) [Concomitant]
  20. JANUVIA (SITAGLIPTIN PHOSPHATE) (SITAGLIPTIN PHOSPHATE) [Concomitant]

REACTIONS (1)
  - Death [None]
